FAERS Safety Report 5234201-X (Version None)
Quarter: 2007Q1

REPORT INFORMATION
  Report Type: 
  Country: None (occurrence: None)
  Receive Date: 20070208
  Receipt Date: 20070129
  Transmission Date: 20070707
  Serious: Yes (Other)
  Sender: FDA-Public Use
  Company Number: 233355

PATIENT
  Sex: Male

DRUGS (2)
  1. LUCENTIS [Suspect]
     Indication: MACULAR DEGENERATION
     Dates: end: 20060927
  2. VITAMINS (VITAMINS NOS) [Concomitant]

REACTIONS (3)
  - BLINDNESS UNILATERAL [None]
  - CHROMATOPSIA [None]
  - EYE HAEMORRHAGE [None]
